FAERS Safety Report 21589381 (Version 3)
Quarter: 2023Q1

REPORT INFORMATION
  Report Type: Report from Study
  Country: US (occurrence: US)
  Receive Date: 20221114
  Receipt Date: 20230324
  Transmission Date: 20230417
  Serious: Yes (Other)
  Sender: FDA-Public Use
  Company Number: US-ABBVIE-4165389

PATIENT
  Sex: Female

DRUGS (1)
  1. RINVOQ [Suspect]
     Active Substance: UPADACITINIB
     Indication: Product used for unknown indication
     Route: 048
     Dates: start: 20220829

REACTIONS (6)
  - Aphasia [Unknown]
  - Migraine [Recovered/Resolved]
  - Acne [Recovered/Resolved]
  - Adverse drug reaction [Unknown]
  - Vision blurred [Recovered/Resolved]
  - Blindness [Unknown]
